FAERS Safety Report 9908208 (Version 1)
Quarter: 2014Q1

REPORT INFORMATION
  Report Type: Spontaneous
  Country: US (occurrence: None)
  Receive Date: 20140212
  Receipt Date: 20140212
  Transmission Date: 20141002
  Serious: Yes (Hospitalization)
  Sender: FDA-Public Use
  Company Number: None

PATIENT
  Sex: Female

DRUGS (1)
  1. LATUDA [Suspect]
     Indication: BIPOLAR DISORDER
     Dates: start: 20131210

REACTIONS (2)
  - Suicidal ideation [None]
  - Mania [None]
